FAERS Safety Report 11831899 (Version 1)
Quarter: 2015Q4

REPORT INFORMATION
  Report Type: Spontaneous
  Country: US (occurrence: None)
  Receive Date: 20151211
  Receipt Date: 20151211
  Transmission Date: 20160305
  Serious: Yes (Hospitalization)
  Sender: FDA-Public Use
  Company Number: None

PATIENT
  Age: 64 Year
  Sex: Male

DRUGS (2)
  1. CEFAZOLIN [Suspect]
     Active Substance: CEFAZOLIN
     Indication: SURGERY
     Dates: start: 20140720, end: 20140720
  2. DESFLURANE. [Suspect]
     Active Substance: DESFLURANE
     Indication: SURGERY
     Dates: start: 20140720, end: 20140720

REACTIONS (2)
  - Drug-induced liver injury [None]
  - Hepatitis acute [None]

NARRATIVE: CASE EVENT DATE: 20140723
